FAERS Safety Report 19265349 (Version 2)
Quarter: 2021Q2

REPORT INFORMATION
  Report Type: Spontaneous
  Country: US (occurrence: US)
  Receive Date: 20210517
  Receipt Date: 20210524
  Transmission Date: 20210717
  Serious: Yes (Other)
  Sender: FDA-Public Use
  Company Number: US-ROCHE-2829165

PATIENT
  Age: 77 Year
  Sex: Female
  Weight: 46.76 kg

DRUGS (4)
  1. LAC HYDRIN [Concomitant]
     Dosage: OVER THE COUNTER ;ONGOING: YES?BRAND NAME ;ONGOING: NO
  2. KLONOPIN [Suspect]
     Active Substance: CLONAZEPAM
     Dosage: NO
     Route: 065
     Dates: end: 20201204
  3. KLONOPIN [Suspect]
     Active Substance: CLONAZEPAM
     Indication: SEIZURE PROPHYLAXIS
     Dosage: START DATE: 14/DEC/2020?ONGOING?YES
     Route: 065
  4. PFIZER?BIONTECH COVID?19 VACCINE [Concomitant]
     Active Substance: TOZINAMERAN
     Dosage: HAD 2 SHOTS ;ONGOING: NO

REACTIONS (5)
  - Musculoskeletal stiffness [Unknown]
  - Seizure [Recovered/Resolved]
  - Peripheral swelling [Unknown]
  - Gastrointestinal disorder [Unknown]
  - Formication [Unknown]

NARRATIVE: CASE EVENT DATE: 202012
